FAERS Safety Report 14167150 (Version 1)
Quarter: 2017Q4

REPORT INFORMATION
  Report Type: Spontaneous
  Country: US (occurrence: US)
  Receive Date: 20171107
  Receipt Date: 20171107
  Transmission Date: 20180321
  Serious: Yes (Other)
  Sender: FDA-Public Use
  Company Number: US-MYLANLABS-2017M1068421

PATIENT
  Age: 40 Year
  Sex: Male

DRUGS (1)
  1. FENTANYL. [Suspect]
     Active Substance: FENTANYL
     Indication: PRODUCT USED FOR UNKNOWN INDICATION
     Dosage: UNK
     Dates: start: 20171020

REACTIONS (3)
  - Loss of consciousness [Unknown]
  - Accidental exposure to product [Unknown]
  - Drug abuse [Unknown]

NARRATIVE: CASE EVENT DATE: 20171020
